FAERS Safety Report 5833703-2 (Version None)
Quarter: 2008Q3

REPORT INFORMATION
  Report Type: 
  Country: None (occurrence: None)
  Receive Date: 20080801
  Receipt Date: 20080721
  Transmission Date: 20090109
  Serious: Yes (Hospitalization)
  Sender: FDA-Public Use
  Company Number: PERC20080047

PATIENT
  Age: 60 Year
  Sex: Female
  Weight: 53.5244 kg

DRUGS (30)
  1. PERCOCET [Suspect]
     Indication: CANCER PAIN
     Dosage: PRN PER ORAL
     Route: 048
     Dates: start: 20060419
  2. DURAGESIC-100 [Suspect]
     Indication: CANCER PAIN
     Dosage: 125 MCG/HR TRANSDERMAL
     Route: 062
     Dates: start: 20061128, end: 20061210
  3. PF-3512676 [Suspect]
     Indication: NON-SMALL CELL LUNG CANCER
     Dosage: 10.84 MG, DAY 8 AND 15, SUBCUTANEOUS
     Route: 058
     Dates: start: 20061003
  4. PACLITAXEL [Suspect]
     Indication: NON-SMALL CELL LUNG CANCER
     Dosage: 200 MG/M2, Q 21 DAYS, INTRAVENOUS
     Route: 042
     Dates: start: 20060926
  5. MS CONTIN [Concomitant]
  6. TAGAMET INJECTION [Concomitant]
  7. EMEND [Concomitant]
  8. XANAX [Concomitant]
  9. MEGACE [Concomitant]
  10. IBUPROFEN [Concomitant]
  11. NEXIUM [Concomitant]
  12. PROMETHAZINE [Concomitant]
  13. DEXAMETHASONE TAB [Concomitant]
  14. ZOLOFT [Concomitant]
  15. PLAVIX [Concomitant]
  16. ZYRTEC [Concomitant]
  17. CRESTOR [Concomitant]
  18. NEURONTIN [Concomitant]
  19. ZOFRAN [Concomitant]
  20. EMLA [Concomitant]
  21. SYNTHROID [Concomitant]
  22. SLOW-MAG [Concomitant]
  23. LUNESTA [Concomitant]
  24. REQUIP [Concomitant]
  25. CARAFATE [Concomitant]
  26. EMEND [Concomitant]
  27. BENADRYL [Concomitant]
  28. ATIVAN [Concomitant]
  29. ALOXI [Concomitant]
  30. CARBOPLATIN [Suspect]
     Indication: LUNG NEOPLASM MALIGNANT
     Dosage: Q21 DAYS INTRAVENOUS
     Route: 042
     Dates: start: 20050926

REACTIONS (3)
  - METABOLIC ENCEPHALOPATHY [None]
  - PNEUMONIA [None]
  - UNRESPONSIVE TO STIMULI [None]
